FAERS Safety Report 18428805 (Version 1)
Quarter: 2020Q4

REPORT INFORMATION
  Report Type: Report from Study
  Country: None (occurrence: US)
  Receive Date: 20201027
  Receipt Date: 20201027
  Transmission Date: 20210114
  Serious: Yes (Hospitalization, Other)
  Sender: FDA-Public Use
  Company Number: US-ABBVIE-20K-163-3494220-00

PATIENT
  Sex: Female

DRUGS (1)
  1. HUMIRA [Suspect]
     Active Substance: ADALIMUMAB
     Indication: CROHN^S DISEASE
     Route: 058
     Dates: start: 20200407

REACTIONS (12)
  - Headache [Unknown]
  - Nasopharyngitis [Unknown]
  - Diarrhoea [Recovering/Resolving]
  - Chills [Unknown]
  - Cholelithiasis [Unknown]
  - Insomnia [Unknown]
  - Hot flush [Unknown]
  - Vomiting [Not Recovered/Not Resolved]
  - Hyperhidrosis [Unknown]
  - Nausea [Not Recovered/Not Resolved]
  - Nasal septum deviation [Unknown]
  - Fatigue [Unknown]

NARRATIVE: CASE EVENT DATE: 2020
